FAERS Safety Report 19088462 (Version 1)
Quarter: 2021Q2

REPORT INFORMATION
  Report Type: Spontaneous
  Country: JP (occurrence: JP)
  Receive Date: 20210402
  Receipt Date: 20210402
  Transmission Date: 20210717
  Serious: Yes (Hospitalization)
  Sender: FDA-Public Use
  Company Number: JP-JNJFOC-A-CH2017-156793

PATIENT
  Age: 25 Year
  Sex: Female
  Weight: 38.1 kg

DRUGS (33)
  1. PREDNISOLONE. [Suspect]
     Active Substance: PREDNISOLONE
     Indication: PRODUCT USED FOR UNKNOWN INDICATION
     Route: 048
  2. OPSUMIT [Concomitant]
     Active Substance: MACITENTAN
     Indication: PULMONARY ARTERIAL HYPERTENSION
     Dosage: 10 MG, QD
     Route: 048
  3. WARFARIN [Concomitant]
     Active Substance: WARFARIN
     Dates: start: 20180130, end: 20180226
  4. ALFACALCIDOL [Concomitant]
     Active Substance: ALFACALCIDOL
  5. ASPARA POTASSIUM [Concomitant]
     Active Substance: POTASSIUM ASPARTATE
  6. TAKECAB [Concomitant]
     Active Substance: VONOPRAZAN FUMARATE
     Indication: PROPHYLAXIS
  7. WARFARIN [Concomitant]
     Active Substance: WARFARIN
     Dates: start: 20171213, end: 20180109
  8. WARFARIN [Concomitant]
     Active Substance: WARFARIN
     Dates: start: 20180227
  9. TOLVAPTAN [Concomitant]
     Active Substance: TOLVAPTAN
  10. INCREMIN [FERRIC PYROPHOSPHATE] [Concomitant]
     Active Substance: FERRIC PYROPHOSPHATE
  11. UPTRAVI [Suspect]
     Active Substance: SELEXIPAG
     Dosage: 0.6 MG, QD
     Route: 048
     Dates: start: 20170616, end: 20180607
  12. SPIRONOLACTONE. [Concomitant]
     Active Substance: SPIRONOLACTONE
  13. ASCATE [Concomitant]
     Dates: end: 20181208
  14. ASCATE [Concomitant]
     Dates: start: 20180115, end: 20180227
  15. ADCIRCA [Concomitant]
     Active Substance: TADALAFIL
     Indication: PULMONARY ARTERIAL HYPERTENSION
     Dosage: 40 MG, QD
  16. WARFARIN [Concomitant]
     Active Substance: WARFARIN
     Dates: start: 20180110, end: 20180129
  17. ALENDRONATE [Concomitant]
     Active Substance: ALENDRONATE SODIUM
     Indication: PROPHYLAXIS
  18. UPTRAVI [Suspect]
     Active Substance: SELEXIPAG
     Indication: PULMONARY ARTERIAL HYPERTENSION
     Dosage: 0.4 MG, BID
     Route: 048
     Dates: start: 20170609, end: 20170610
  19. E KEPPRA [Concomitant]
     Active Substance: LEVETIRACETAM
     Indication: CEREBRAL HAEMORRHAGE
  20. WARFARIN [Concomitant]
     Active Substance: WARFARIN
     Dates: end: 20171126
  21. WARFARIN [Concomitant]
     Active Substance: WARFARIN
     Dates: start: 20171127, end: 20171203
  22. FERRIC CITRATE [Concomitant]
     Active Substance: TETRAFERRIC TRICITRATE DECAHYDRATE
     Dates: end: 20180227
  23. UPTRAVI [Suspect]
     Active Substance: SELEXIPAG
     Dosage: 0.2 MG, BID
     Route: 048
     Dates: start: 20170611, end: 20170615
  24. PREDONINE [Concomitant]
     Active Substance: PREDNISOLONE
     Dates: end: 20180227
  25. FERRUM [IRON] [Concomitant]
     Active Substance: IRON
  26. UPTRAVI [Suspect]
     Active Substance: SELEXIPAG
     Dosage: 0.2 MG, BID
     Route: 048
     Dates: start: 20170529, end: 20170608
  27. UPTRAVI [Suspect]
     Active Substance: SELEXIPAG
     Route: 048
     Dates: start: 20180622, end: 20180906
  28. LASIX [Concomitant]
     Active Substance: FUROSEMIDE
     Dates: end: 20180227
  29. FUROSEMIDE. [Concomitant]
     Active Substance: FUROSEMIDE
  30. UPTRAVI [Suspect]
     Active Substance: SELEXIPAG
     Route: 048
     Dates: start: 20180608, end: 20180621
  31. ASCATE [Concomitant]
     Dates: start: 20171209, end: 20180114
  32. WARFARIN [Concomitant]
     Active Substance: WARFARIN
     Dates: start: 20171204, end: 20171212
  33. FLUITRAN [TRICHLORMETHIAZIDE] [Concomitant]
     Active Substance: TRICHLORMETHIAZIDE

REACTIONS (3)
  - Staphylococcal sepsis [Recovered/Resolved]
  - Headache [Recovered/Resolved]
  - Eye pain [Recovered/Resolved]

NARRATIVE: CASE EVENT DATE: 20170610
